FAERS Safety Report 20080390 (Version 7)
Quarter: 2023Q1

REPORT INFORMATION
  Report Type: Spontaneous
  Country: PL (occurrence: PL)
  Receive Date: 20211117
  Receipt Date: 20230323
  Transmission Date: 20230418
  Serious: Yes (Hospitalization, Other)
  Sender: FDA-Public Use
  Company Number: PL-SUNFARM-20213389

PATIENT
  Age: 36 Year
  Sex: Male

DRUGS (10)
  1. PANTOPRAZOLE [Suspect]
     Active Substance: PANTOPRAZOLE
     Indication: Cardiac sarcoidosis
     Dosage: 20 MILLIGRAM, QD
     Route: 048
  2. PANTOPRAZOLE [Suspect]
     Active Substance: PANTOPRAZOLE
     Indication: Lung disorder
  3. METHYLPREDNISOLONE [Suspect]
     Active Substance: METHYLPREDNISOLONE
     Indication: Cardiac sarcoidosis
     Dosage: 32 MILLIGRAM, QD
     Route: 065
  4. METHYLPREDNISOLONE [Suspect]
     Active Substance: METHYLPREDNISOLONE
     Indication: Adrenocortical steroid therapy
     Dosage: 28 MILLIGRAM
     Route: 065
  5. METHYLPREDNISOLONE [Suspect]
     Active Substance: METHYLPREDNISOLONE
     Indication: Lung disorder
     Dosage: 24 MG, DAILY
     Route: 065
  6. METHYLPREDNISOLONE [Suspect]
     Active Substance: METHYLPREDNISOLONE
     Dosage: 8 MG, DAILY
     Route: 065
  7. BECLOMETHASONE\FORMOTEROL [Suspect]
     Active Substance: BECLOMETHASONE\FORMOTEROL
     Indication: Cardiac sarcoidosis
     Dosage: UNK (INHALATION)
  8. BECLOMETHASONE\FORMOTEROL [Suspect]
     Active Substance: BECLOMETHASONE\FORMOTEROL
     Indication: Lung disorder
  9. BISOPROLOL [Suspect]
     Active Substance: BISOPROLOL
     Indication: Cardiac sarcoidosis
     Dosage: 2.5 MILLIGRAM, QD
     Route: 048
  10. BISOPROLOL [Suspect]
     Active Substance: BISOPROLOL
     Indication: Lung disorder
     Dosage: 10 MILLIGRAM, QD
     Route: 048

REACTIONS (5)
  - Cushing^s syndrome [Unknown]
  - Blood creatinine increased [Unknown]
  - Therapeutic response decreased [Unknown]
  - Fibrin D dimer increased [Unknown]
  - Off label use [Unknown]
